FAERS Safety Report 4998376-X (Version None)
Quarter: 2006Q2

REPORT INFORMATION
  Report Type: 
  Country: None (occurrence: None)
  Receive Date: 20060510
  Receipt Date: 20060213
  Transmission Date: 20061013
  Serious: Yes (Hospitalization)
  Sender: FDA-Public Use
  Company Number: FR-ABBOTT-06P-056-0325244-00

PATIENT
  Sex: Female
  Weight: 45 kg

DRUGS (8)
  1. HUMIRA [Suspect]
     Indication: RHEUMATOID ARTHRITIS
     Route: 058
     Dates: start: 20030924, end: 20031017
  2. HUMIRA [Suspect]
     Route: 058
     Dates: start: 20031001, end: 20031029
  3. PREDNISONE TAB [Concomitant]
     Indication: RHEUMATOID ARTHRITIS
     Route: 048
     Dates: start: 19850101
  4. METHOTREXATE [Concomitant]
     Indication: RHEUMATOID ARTHRITIS
     Route: 048
     Dates: start: 19850101, end: 20041101
  5. FOLIC ACID [Concomitant]
     Indication: RHEUMATOID ARTHRITIS
     Dates: start: 19850101
  6. CALCIUM WITH VITAMIN D [Concomitant]
     Indication: RHEUMATOID ARTHRITIS
     Dates: start: 19850101
  7. BISPHOSPHONATE [Concomitant]
     Indication: RHEUMATOID ARTHRITIS
     Dates: start: 19850101
  8. REMICADE [Concomitant]
     Indication: DRUG USE FOR UNKNOWN INDICATION
     Route: 042

REACTIONS (9)
  - CEREBRAL ARTERY THROMBOSIS [None]
  - CEREBROVASCULAR ACCIDENT [None]
  - CHEST DISCOMFORT [None]
  - COUGH [None]
  - DRY MOUTH [None]
  - HEADACHE [None]
  - LUNG ADENOCARCINOMA [None]
  - MUSCULOSKELETAL CHEST PAIN [None]
  - TRANSIENT ISCHAEMIC ATTACK [None]
